FAERS Safety Report 23566277 (Version 1)
Quarter: 2024Q1

REPORT INFORMATION
  Report Type: Spontaneous
  Country: FR (occurrence: FR)
  Receive Date: 20240226
  Receipt Date: 20240226
  Transmission Date: 20240410
  Serious: Yes (Hospitalization)
  Sender: FDA-Public Use
  Company Number: FR-AMGEN-FRASP2024035710

PATIENT
  Age: 25 Year
  Sex: Male
  Weight: 96 kg

DRUGS (9)
  1. PEGFILGRASTIM [Suspect]
     Active Substance: PEGFILGRASTIM
     Indication: Hepatocellular carcinoma
     Dosage: 6 MILLIGRAM TOTAL
     Route: 065
     Dates: start: 20231123, end: 20231123
  2. ELTROMBOPAG OLAMINE [Concomitant]
     Active Substance: ELTROMBOPAG OLAMINE
  3. Loxen [Concomitant]
     Dosage: 100 MILLIGRAM, QD,SUSTAINED-RELEASE CAPSULE
  4. COLCHICINE [Concomitant]
     Active Substance: COLCHICINE
  5. RAMIPRIL [Concomitant]
     Active Substance: RAMIPRIL
     Dosage: 5 MILLIGRAM, QD
  6. ASPIRIN DL-LYSINE [Concomitant]
     Active Substance: ASPIRIN DL-LYSINE
  7. GEMCITABINE [Concomitant]
     Active Substance: GEMCITABINE
     Dates: start: 20230927
  8. OXALIPLATIN [Concomitant]
     Active Substance: OXALIPLATIN
     Dates: start: 20230927
  9. PROPRANOLOL [Concomitant]
     Active Substance: PROPRANOLOL HYDROCHLORIDE
     Dosage: 160 MILLIGRAM, QD

REACTIONS (1)
  - Anaphylactoid reaction [Recovered/Resolved]

NARRATIVE: CASE EVENT DATE: 20231124
